FAERS Safety Report 6806033-X (Version None)
Quarter: 2010Q2

REPORT INFORMATION
  Report Type: 
  Country: None (occurrence: None)
  Receive Date: 20100629
  Receipt Date: 20071217
  Transmission Date: 20101027
  Serious: Yes (Other)
  Sender: FDA-Public Use
  Company Number: US-PFIZER INC-2007103779

PATIENT
  Sex: Male
  Weight: 108.9 kg

DRUGS (10)
  1. VIAGRA [Suspect]
     Indication: ERECTILE DYSFUNCTION
     Dates: start: 19980101
  2. PREDNISONE [Suspect]
     Indication: DEAFNESS
     Dates: start: 20071101
  3. PLAVIX [Concomitant]
  4. ZETIA [Concomitant]
  5. LIBRIUM [Concomitant]
     Indication: SLEEP DISORDER
  6. ATORVASTATIN [Concomitant]
  7. AMARYL [Concomitant]
  8. LASIX [Concomitant]
  9. ALDACTONE [Concomitant]
  10. VITAMINS [Concomitant]

REACTIONS (2)
  - DEAFNESS UNILATERAL [None]
  - DRUG INEFFECTIVE [None]
